FAERS Safety Report 8936292 (Version 3)
Quarter: 2013Q2

REPORT INFORMATION
  Report Type: Spontaneous
  Country: US (occurrence: US)
  Receive Date: 20121130
  Receipt Date: 20130528
  Transmission Date: 20140414
  Serious: No
  Sender: FDA-Public Use
  Company Number: US-ABBOTT-12P-163-1003256-00

PATIENT
  Age: 50 Year
  Sex: Male
  Weight: 78.09 kg

DRUGS (5)
  1. ANDROGEL [Suspect]
     Indication: BLOOD TESTOSTERONE DECREASED
     Dosage: 1 PUMP DAILY
     Dates: start: 201103, end: 201106
  2. ANDROGEL [Suspect]
     Dosage: 2 PUMPS DAILY
     Dates: start: 201106, end: 201110
  3. ANDROGEL [Suspect]
     Dosage: 3 PUMPS DAILY
     Dates: start: 201110, end: 201207
  4. ANDROGEL [Suspect]
     Dosage: 4 PUMPS DAILY
     Dates: start: 201207, end: 20121030
  5. HYDROCHLOROTHIAZIDE [Concomitant]
     Indication: PRODUCT USED FOR UNKNOWN INDICATION

REACTIONS (1)
  - Blood testosterone decreased [Not Recovered/Not Resolved]
